FAERS Safety Report 8478475-0 (Version None)
Quarter: 2012Q2

REPORT INFORMATION
  Report Type: 
  Country: None (occurrence: None)
  Receive Date: 20120629
  Receipt Date: 20120622
  Transmission Date: 20120825
  Serious: Yes (Hospitalization)
  Sender: FDA-Public Use
  Company Number: FR-ASTELLAS-2012US005726

PATIENT
  Sex: Male
  Weight: 80 kg

DRUGS (3)
  1. ERLOTINIB HYDROCHLORIDE [Suspect]
     Indication: MYELODYSPLASTIC SYNDROME
     Dosage: 150 MG, UID/QD
     Route: 048
     Dates: start: 20120412, end: 20120531
  2. ARANESP [Concomitant]
     Indication: PRODUCT USED FOR UNKNOWN INDICATION
     Dosage: 300 MG, UID/QD
     Route: 065
     Dates: start: 20120412
  3. LOVENOX [Concomitant]
     Indication: PRODUCT USED FOR UNKNOWN INDICATION
     Dosage: 6000 IU, UNKNOWN/D
     Route: 058
     Dates: start: 20120510

REACTIONS (3)
  - HAEMATOTOXICITY [None]
  - FEBRILE BONE MARROW APLASIA [None]
  - OFF LABEL USE [None]
